FAERS Safety Report 4413860-5 (Version None)
Quarter: 2004Q3

REPORT INFORMATION
  Report Type: 
  Country: None (occurrence: None)
  Receive Date: 20040728
  Receipt Date: 20040716
  Transmission Date: 20050211
  Serious: Yes (Life-Threatening)
  Sender: FDA-Public Use
  Company Number: GB-JNJFOC-20040705098

PATIENT
  Age: 48 Year
  Sex: Female

DRUGS (5)
  1. REMICADE [Suspect]
     Indication: CROHN'S DISEASE
     Dosage: 250 MG, INTRAVENOUS
     Route: 042
     Dates: start: 20040616
  2. AZATHIOPRINE [Concomitant]
  3. ATENOLOL [Concomitant]
  4. PENTASA [Concomitant]
  5. FOLIC ACID [Concomitant]

REACTIONS (1)
  - TYPE IV HYPERSENSITIVITY REACTION [None]
